FAERS Safety Report 5186839-6 (Version None)
Quarter: 2006Q4

REPORT INFORMATION
  Report Type: 
  Country: None (occurrence: None)
  Receive Date: 20061213
  Receipt Date: 20061205
  Transmission Date: 20070319
  Serious: Yes (Death)
  Sender: FDA-Public Use
  Company Number: S06-USA-05105-01

PATIENT
  Age: 42 Year
  Sex: Male

DRUGS (2)
  1. LEXAPRO [Suspect]
     Dosage: 20 MG QD PO
     Route: 048
     Dates: start: 20061128, end: 20061130
  2. LEXAPRO [Suspect]
     Dosage: 10 MG QD PO
     Route: 048
     Dates: start: 20061112, end: 20061127

REACTIONS (2)
  - COMPLETED SUICIDE [None]
  - GUN SHOT WOUND [None]
